FAERS Safety Report 6411138-1 (Version None)
Quarter: 2009Q4

REPORT INFORMATION
  Report Type: 
  Country: None (occurrence: None)
  Receive Date: 20091022
  Receipt Date: 20091014
  Transmission Date: 20100525
  Serious: Yes (Other)
  Sender: FDA-Public Use
  Company Number: JP-PFIZER INC-2009281090

PATIENT
  Age: 79 Year

DRUGS (2)
  1. SOLU-MEDROL [Suspect]
     Indication: SPINAL CORD INJURY
     Dosage: 40MG DAILY
     Dates: start: 20090929, end: 20091003
  2. ITOPRIDE HYDROCHLORIDE [Concomitant]

REACTIONS (1)
  - HEPATIC FUNCTION ABNORMAL [None]
